FAERS Safety Report 12422835 (Version 2)
Quarter: 2016Q2

REPORT INFORMATION
  Report Type: Spontaneous
  Country: GB (occurrence: GB)
  Receive Date: 20160601
  Receipt Date: 20160616
  Transmission Date: 20160815
  Serious: Yes (Death)
  Sender: FDA-Public Use
  Company Number: GB-NAPPMUNDI-GBR-2016-0035224

PATIENT
  Sex: Male

DRUGS (8)
  1. BUTRANS [Suspect]
     Active Substance: BUPRENORPHINE
     Dosage: 5 MCG, Q1H
     Route: 062
  2. MIRTAZAPINE. [Concomitant]
     Active Substance: MIRTAZAPINE
     Dosage: 45 MG, DAILY
  3. VITAMIN B [Concomitant]
     Active Substance: VITAMIN B
     Dosage: 1 UNK, DAILY
  4. BUTRANS [Suspect]
     Active Substance: BUPRENORPHINE
     Indication: PRODUCT USED FOR UNKNOWN INDICATION
     Dosage: 10 MCG, Q1H
     Route: 062
     Dates: start: 20160404
  5. THIAMINE. [Concomitant]
     Active Substance: THIAMINE
     Dosage: 100 MG, BID
  6. LANSOPRAZOLE. [Concomitant]
     Active Substance: LANSOPRAZOLE
     Dosage: 15 MG, DAILY
  7. SENNA LIQUID EXTRACT [Concomitant]
     Dosage: 10 ML, DAILY
  8. BISOPROLOL [Concomitant]
     Active Substance: BISOPROLOL
     Dosage: 2.5 MG, DAILY

REACTIONS (2)
  - Death [Fatal]
  - Breakthrough pain [Not Recovered/Not Resolved]
